FAERS Safety Report 10467789 (Version 2)
Quarter: 2014Q4

REPORT INFORMATION
  Report Type: Spontaneous
  Country: AT (occurrence: AT)
  Receive Date: 20140922
  Receipt Date: 20141112
  Transmission Date: 20150528
  Serious: Yes (Other)
  Sender: FDA-Public Use
  Company Number: AT-ASTELLAS-2014EU012617

PATIENT
  Sex: Female

DRUGS (6)
  1. URIVESC [Suspect]
     Active Substance: TROSPIUM CHLORIDE
     Dosage: UNK, UNKNOWN FREQ.
     Route: 065
     Dates: start: 201407
  2. VESICARE [Suspect]
     Active Substance: SOLIFENACIN SUCCINATE
     Indication: URGE INCONTINENCE
     Dosage: UNK, UNKNOWN FREQ.
     Route: 065
     Dates: start: 201404
  3. URIVESC [Suspect]
     Active Substance: TROSPIUM CHLORIDE
     Indication: URGE INCONTINENCE
     Dosage: UNK, UNKNOWN FREQ.
     Route: 065
     Dates: start: 201402
  4. TOLFESOCHINE [Suspect]
     Active Substance: UNSPECIFIED INGREDIENT
     Indication: PRODUCT USED FOR UNKNOWN INDICATION
     Dosage: UNK UNK, UNKNOWN FREQ.
     Route: 065
     Dates: start: 201405
  5. DITROPAN [Suspect]
     Active Substance: OXYBUTYNIN CHLORIDE
     Indication: URGE INCONTINENCE
     Dosage: UNK, UNKNOWN FREQ.
     Route: 065
     Dates: start: 201406
  6. BETMIGA [Suspect]
     Active Substance: MIRABEGRON
     Indication: URGE INCONTINENCE
     Dosage: UNK UNK, UNKNOWN FREQ.
     Route: 065
     Dates: start: 201408

REACTIONS (5)
  - Chest discomfort [Unknown]
  - Heart rate increased [Unknown]
  - Dizziness [Unknown]
  - Cardiac disorder [Unknown]
  - Dry mouth [Unknown]
